FAERS Safety Report 6100642-1 (Version None)
Quarter: 2009Q1

REPORT INFORMATION
  Report Type: 
  Country: None (occurrence: None)
  Receive Date: 20090303
  Receipt Date: 20090223
  Transmission Date: 20090719
  Serious: Yes (Hospitalization)
  Sender: FDA-Public Use
  Company Number: DE-PFIZER INC-2009164142

PATIENT

DRUGS (3)
  1. SORTIS [Suspect]
     Indication: HYPERCHOLESTEROLAEMIA
     Dosage: 40MG DAILY
     Dates: start: 20080603, end: 20080624
  2. SORTIS [Suspect]
     Dosage: 80MG DAILY
     Route: 048
     Dates: start: 20080424, end: 20080603
  3. SORTIS [Suspect]
     Dosage: 20 MG, DAILY
     Route: 048
     Dates: start: 20071206, end: 20080424

REACTIONS (4)
  - ABDOMINAL PAIN [None]
  - GLOMERULONEPHRITIS MEMBRANOUS [None]
  - MUSCLE SPASMS [None]
  - NEPHROTIC SYNDROME [None]
